FAERS Safety Report 10098484 (Version 1)
Quarter: 2014Q2

REPORT INFORMATION
  Report Type: Spontaneous
  Country: US (occurrence: US)
  Receive Date: 20140423
  Receipt Date: 20140423
  Transmission Date: 20141212
  Serious: Yes (Hospitalization)
  Sender: FDA-Public Use
  Company Number: US-AMGEN-USASP2014028069

PATIENT
  Age: 51 Year
  Sex: Male

DRUGS (10)
  1. SENSIPAR [Suspect]
     Indication: HYPERPARATHYROIDISM SECONDARY
     Dosage: 60 MG, QD
     Route: 065
     Dates: start: 2010
  2. NORVASC [Concomitant]
  3. PHOSLO [Concomitant]
  4. BENADRYL                           /00000402/ [Concomitant]
  5. VITAMIN D                          /00107901/ [Concomitant]
  6. HEPARIN [Concomitant]
     Route: 058
  7. HYDROCODONE [Concomitant]
  8. ACETAMINOPHEN [Concomitant]
  9. TOPROL [Concomitant]
  10. RENAGEL                            /01459901/ [Concomitant]

REACTIONS (1)
  - Jaw disorder [Unknown]
